FAERS Safety Report 7209391-X (Version None)
Quarter: 2011Q1

REPORT INFORMATION
  Report Type: 
  Country: None (occurrence: None)
  Receive Date: 20110104
  Receipt Date: 20101228
  Transmission Date: 20110831
  Serious: Yes (Other)
  Sender: FDA-Public Use
  Company Number: US-TEVA-261475USA

PATIENT
  Sex: Male

DRUGS (1)
  1. METOCLOPRAMIDE [Suspect]
     Dates: start: 20040401, end: 20070801

REACTIONS (8)
  - PARKINSONISM [None]
  - AKATHISIA [None]
  - DYSKINESIA [None]
  - PARKINSON'S DISEASE [None]
  - CHOREA [None]
  - DEMENTIA [None]
  - TARDIVE DYSKINESIA [None]
  - BRADYKINESIA [None]
